FAERS Safety Report 8045997-6 (Version None)
Quarter: 2012Q1

REPORT INFORMATION
  Report Type: 
  Country: None (occurrence: None)
  Receive Date: 20120113
  Receipt Date: 20120103
  Transmission Date: 20120608
  Serious: Yes (Other)
  Sender: FDA-Public Use
  Company Number: US-PFIZER INC-2012001052

PATIENT
  Sex: Male
  Weight: 90.703 kg

DRUGS (4)
  1. FIORICET [Concomitant]
     Indication: HEADACHE
     Dosage: UNK
  2. FOSAMAX [Concomitant]
     Indication: OSTEOPOROSIS
     Dosage: UNK
  3. SOMA [Concomitant]
     Indication: HEADACHE
     Dosage: UNK
  4. LYRICA [Suspect]
     Indication: FIBROMYALGIA
     Dosage: 150 MG, 2X/DAY
     Route: 048

REACTIONS (1)
  - CHRONIC OBSTRUCTIVE PULMONARY DISEASE [None]
